FAERS Safety Report 7764562-9 (Version None)
Quarter: 2011Q3

REPORT INFORMATION
  Report Type: 
  Country: None (occurrence: None)
  Receive Date: 20110921
  Receipt Date: 20110915
  Transmission Date: 20111222
  Serious: Yes (Other)
  Sender: FDA-Public Use
  Company Number: US-PFIZER INC-2011218574

PATIENT
  Sex: Male

DRUGS (1)
  1. NEURONTIN [Suspect]
     Indication: NERVE COMPRESSION
     Dosage: 2400 MG, PER DAY

REACTIONS (4)
  - PAIN [None]
  - DRUG INEFFECTIVE [None]
  - BIPOLAR DISORDER [None]
  - CONSTIPATION [None]
